FAERS Safety Report 23682309 (Version 1)
Quarter: 2024Q1

REPORT INFORMATION
  Report Type: Other
  Country: GR (occurrence: None)
  Receive Date: 20240328
  Receipt Date: 20240328
  Transmission Date: 20240410
  Serious: Yes (Death, Hospitalization, Other)
  Sender: FDA-Public Use
  Company Number: GR-ROCHE-3532326

PATIENT

DRUGS (1)
  1. TOCILIZUMAB [Suspect]
     Active Substance: TOCILIZUMAB
     Indication: Giant cell arteritis
     Route: 065

REACTIONS (10)
  - Myocardial infarction [Fatal]
  - Cardiac failure [Fatal]
  - Osteoporosis [Unknown]
  - Cataract [Unknown]
  - Diabetes mellitus [Unknown]
  - Aortic aneurysm rupture [Unknown]
  - Infection [Fatal]
  - Herpes zoster [Unknown]
  - Lung neoplasm malignant [Unknown]
  - Skin cancer [Unknown]
